FAERS Safety Report 17830344 (Version 3)
Quarter: 2020Q2

REPORT INFORMATION
  Report Type: Spontaneous
  Country: PL (occurrence: PL)
  Receive Date: 20200527
  Receipt Date: 20200616
  Transmission Date: 20200714
  Serious: Yes (Other)
  Sender: FDA-Public Use
  Company Number: NVSC2020PL140965

PATIENT
  Age: 40 Year
  Sex: Male

DRUGS (2)
  1. AMLODIPINE,VALSARTAN [Suspect]
     Active Substance: AMLODIPINE\VALSARTAN
     Indication: DYSLIPIDAEMIA
  2. AMLODIPINE,VALSARTAN [Suspect]
     Active Substance: AMLODIPINE\VALSARTAN
     Indication: HYPERTENSION
     Dosage: UNK
     Route: 065

REACTIONS (5)
  - Lipidosis [Recovering/Resolving]
  - Nonalcoholic fatty liver disease [Recovering/Resolving]
  - Blood glucose decreased [Recovering/Resolving]
  - Blood glucose abnormal [Recovering/Resolving]
  - Transaminases increased [Recovering/Resolving]
